FAERS Safety Report 6528402-8 (Version None)
Quarter: 2010Q1

REPORT INFORMATION
  Report Type: 
  Country: None (occurrence: None)
  Receive Date: 20100106
  Receipt Date: 20100104
  Transmission Date: 20100710
  Serious: Yes (Other)
  Sender: FDA-Public Use
  Company Number: A0834776A

PATIENT
  Age: 40 Year
  Sex: Male
  Weight: 100 kg

DRUGS (2)
  1. LOVAZA [Suspect]
     Dosage: 4CAP PER DAY
     Route: 048
  2. NEXIUM [Concomitant]
     Route: 048

REACTIONS (4)
  - ANAPHYLACTIC REACTION [None]
  - BRONCHOSPASM [None]
  - DYSPNOEA [None]
  - URTICARIA [None]
